FAERS Safety Report 16065888 (Version 2)
Quarter: 2019Q1

REPORT INFORMATION
  Report Type: Report from Study
  Country: IT (occurrence: IT)
  Receive Date: 20190313
  Receipt Date: 20190314
  Transmission Date: 20190418
  Serious: Yes (Hospitalization)
  Sender: FDA-Public Use
  Company Number: PHHO2019IT002670

PATIENT
  Age: 76 Year
  Sex: Female
  Weight: 62 kg

DRUGS (2)
  1. ELTROMBOPAG [Suspect]
     Active Substance: ELTROMBOPAG
     Indication: MYELODYSPLASTIC SYNDROME
     Dosage: 50 MG, QD
     Route: 048
     Dates: start: 20190110
  2. ELTROMBOPAG [Suspect]
     Active Substance: ELTROMBOPAG
     Dosage: 200 MG, QD
     Route: 048
     Dates: start: 20190223

REACTIONS (1)
  - Metabolic encephalopathy [Not Recovered/Not Resolved]

NARRATIVE: CASE EVENT DATE: 20190303
